FAERS Safety Report 22131150 (Version 1)
Quarter: 2023Q1

REPORT INFORMATION
  Report Type: Spontaneous
  Country: FR (occurrence: FR)
  Receive Date: 20230323
  Receipt Date: 20230323
  Transmission Date: 20230417
  Serious: Yes (Congenital Anomaly)
  Sender: FDA-Public Use
  Company Number: None

PATIENT
  Age: 2 Year
  Sex: Female

DRUGS (3)
  1. ALPRAZOLAM [Suspect]
     Active Substance: ALPRAZOLAM
     Indication: Bipolar disorder
     Route: 064
     Dates: start: 20171208, end: 20180810
  2. LAMOTRIGINE [Suspect]
     Active Substance: LAMOTRIGINE
     Indication: Bipolar disorder
     Route: 064
     Dates: start: 20171208, end: 20180810
  3. CLOMIPRAMINE HYDROCHLORIDE [Suspect]
     Active Substance: CLOMIPRAMINE HYDROCHLORIDE
     Indication: Bipolar disorder
     Route: 064
     Dates: start: 20171208, end: 20180810

REACTIONS (2)
  - Behaviour disorder [Not Recovered/Not Resolved]
  - Developmental delay [Not Recovered/Not Resolved]

NARRATIVE: CASE EVENT DATE: 20200101
